FAERS Safety Report 9226559 (Version 2)
Quarter: 2013Q3

REPORT INFORMATION
  Report Type: Report from Study
  Country: US (occurrence: US)
  Receive Date: 20130412
  Receipt Date: 20130703
  Transmission Date: 20140515
  Serious: Yes (Hospitalization)
  Sender: FDA-Public Use
  Company Number: US-BIOGENIDEC-2013BI030735

PATIENT
  Age: 50 Year
  Sex: Male
  Weight: 129 kg

DRUGS (8)
  1. BG00012 [Suspect]
     Indication: MULTIPLE SCLEROSIS
     Route: 048
     Dates: start: 20091030
  2. CLONAZEPAM [Concomitant]
     Indication: MUSCLE SPASTICITY
     Route: 048
     Dates: start: 20111206
  3. VIAGRA [Concomitant]
     Indication: ERECTILE DYSFUNCTION
     Route: 048
     Dates: start: 20111205
  4. SYNTHROID [Concomitant]
     Indication: HYPOTHYROIDISM
     Route: 048
     Dates: start: 20070611
  5. TYLENOL [Concomitant]
     Indication: OSTEOARTHRITIS
     Route: 048
     Dates: start: 20080101
  6. VICODIN [Concomitant]
     Indication: OSTEOARTHRITIS
     Dates: start: 20121220
  7. GLUCOSAMINE [Concomitant]
     Route: 048
  8. DICLOFENAC [Concomitant]
     Route: 048

REACTIONS (1)
  - Osteoarthritis [Recovered/Resolved]
